FAERS Safety Report 10014150 (Version 2)
Quarter: 2014Q1

REPORT INFORMATION
  Report Type: Spontaneous
  Country: US (occurrence: US)
  Receive Date: 20140317
  Receipt Date: 20140325
  Transmission Date: 20141002
  Serious: Yes (Other)
  Sender: FDA-Public Use
  Company Number: US-BIOGENIDEC-2014BI023667

PATIENT
  Sex: Male

DRUGS (2)
  1. AVONEX [Suspect]
     Indication: MULTIPLE SCLEROSIS
     Route: 030
     Dates: start: 20110924, end: 20130226
  2. COPAXONE [Concomitant]

REACTIONS (3)
  - Wound sepsis [Recovered/Resolved]
  - Convulsion [Recovered/Resolved]
  - Splinter [Recovered/Resolved]
